FAERS Safety Report 7226214-3 (Version None)
Quarter: 2011Q1

REPORT INFORMATION
  Report Type: 
  Country: None (occurrence: None)
  Receive Date: 20110114
  Receipt Date: 20110103
  Transmission Date: 20110831
  Serious: Yes (Hospitalization)
  Sender: FDA-Public Use
  Company Number: PHHY2010US86277

PATIENT
  Age: 84 Year
  Sex: Female
  Weight: 125 kg

DRUGS (7)
  1. LOSARTAN [Suspect]
     Dosage: 100 MG, UNK
  2. VITAMIN D [Concomitant]
  3. PEPCID [Concomitant]
  4. CALCIUM [Concomitant]
  5. METOPROLOL TARTRATE [Concomitant]
  6. DIOVAN [Suspect]
     Dosage: 100 MG
  7. LIBRIUM [Concomitant]

REACTIONS (7)
  - ASTHENIA [None]
  - DYSPNOEA [None]
  - HYPERTENSION [None]
  - NERVOUSNESS [None]
  - HYPOTENSION [None]
  - LOW DENSITY LIPOPROTEIN INCREASED [None]
  - PALPITATIONS [None]
